FAERS Safety Report 12204341 (Version 1)
Quarter: 2016Q1

REPORT INFORMATION
  Report Type: Spontaneous
  Country: US (occurrence: US)
  Receive Date: 20160323
  Receipt Date: 20160323
  Transmission Date: 20160526
  Serious: Yes (Hospitalization)
  Sender: FDA-Public Use
  Company Number: US-BEH-2016060301

PATIENT
  Age: 57 Year
  Sex: Female
  Weight: 76 kg

DRUGS (35)
  1. ZEMAIRA [Suspect]
     Active Substance: .ALPHA.1-PROTEINASE INHIBITOR HUMAN
     Indication: ALPHA-1 ANTI-TRYPSIN DEFICIENCY
     Route: 042
  2. LACTATED RINGERS [Concomitant]
     Active Substance: CALCIUM CHLORIDE\POTASSIUM CHLORIDE\SODIUM CHLORIDE\SODIUM LACTATE
  3. SODIUM CHLORIDE. [Concomitant]
     Active Substance: SODIUM CHLORIDE
  4. L-M-X [Concomitant]
  5. SALINE FLUSH KIT [Concomitant]
  6. PROPRANOLOL [Concomitant]
     Active Substance: PROPRANOLOL\PROPRANOLOL HYDROCHLORIDE
  7. ZOLPIDEM TARTRATE. [Concomitant]
     Active Substance: ZOLPIDEM TARTRATE
  8. ZYRTEC [Concomitant]
     Active Substance: CETIRIZINE HYDROCHLORIDE
  9. SYNTHROID [Concomitant]
     Active Substance: LEVOTHYROXINE SODIUM
  10. NASONEX [Concomitant]
     Active Substance: MOMETASONE FUROATE
  11. LOVENOX [Concomitant]
     Active Substance: ENOXAPARIN SODIUM
  12. TOPIRAMATE. [Concomitant]
     Active Substance: TOPIRAMATE
  13. MULTIVITAMIN [Concomitant]
     Active Substance: VITAMINS
  14. HEPARIN [Concomitant]
     Active Substance: HEPARIN SODIUM
  15. MACROBID [Concomitant]
     Active Substance: NITROFURANTOIN\NITROFURANTOIN MONOHYDRATE
  16. FLUOXETINE [Concomitant]
     Active Substance: FLUOXETINE HYDROCHLORIDE
  17. PYRIDIUM [Concomitant]
     Active Substance: PHENAZOPYRIDINE
  18. ASPIRIN. [Concomitant]
     Active Substance: ASPIRIN
  19. EPIPEN [Concomitant]
     Active Substance: EPINEPHRINE
  20. VITAMIN D [Concomitant]
     Active Substance: CHOLECALCIFEROL
  21. NORCO [Concomitant]
     Active Substance: ACETAMINOPHEN\HYDROCODONE BITARTRATE
  22. PROBIOTIC FORMULA [Concomitant]
  23. DIPHENHYDRAMINE. [Concomitant]
     Active Substance: DIPHENHYDRAMINE
  24. CEFAZOLIN [Concomitant]
     Active Substance: CEFAZOLIN
  25. PROTONIX [Concomitant]
     Active Substance: PANTOPRAZOLE SODIUM
  26. HEPARIN [Concomitant]
     Active Substance: HEPARIN SODIUM
  27. ALBUTEROL. [Concomitant]
     Active Substance: ALBUTEROL
  28. CALCIUM 500 [Concomitant]
  29. ZEMAIRA [Suspect]
     Active Substance: .ALPHA.1-PROTEINASE INHIBITOR HUMAN
     Indication: GASTRITIS
     Route: 042
  30. NEURONTIN [Concomitant]
     Active Substance: GABAPENTIN
  31. CLONAZEPAM. [Concomitant]
     Active Substance: CLONAZEPAM
  32. ADVAIR HFA [Concomitant]
     Active Substance: FLUTICASONE PROPIONATE\SALMETEROL XINAFOATE
  33. CYMBALTA [Concomitant]
     Active Substance: DULOXETINE HYDROCHLORIDE
  34. DILAUDID [Concomitant]
     Active Substance: HYDROMORPHONE HYDROCHLORIDE
  35. PROMETHAZINE [Concomitant]
     Active Substance: PROMETHAZINE\PROMETHAZINE HYDROCHLORIDE

REACTIONS (1)
  - Pneumonia [Recovered/Resolved]

NARRATIVE: CASE EVENT DATE: 20160304
